FAERS Safety Report 16733293 (Version 2)
Quarter: 2020Q2

REPORT INFORMATION
  Report Type: Spontaneous
  Country: US (occurrence: US)
  Receive Date: 20190823
  Receipt Date: 20200519
  Transmission Date: 20200713
  Serious: No
  Sender: FDA-Public Use
  Company Number: US-TEVA-2019-US-1095921

PATIENT
  Age: 71 Year
  Sex: Female
  Weight: 61 kg

DRUGS (6)
  1. ALBUTEROL. [Suspect]
     Active Substance: ALBUTEROL
     Indication: CHRONIC OBSTRUCTIVE PULMONARY DISEASE
  2. FLUTICASONE PROPIONATE/SALMETEROL [Suspect]
     Active Substance: FLUTICASONE PROPIONATE\SALMETEROL XINAFOATE
     Indication: ASTHMA
     Dosage: 2 DOSAGE FORMS DAILY; 232/14 MCG; 1 PUFF TWICE DAILY IN THE MORNING AND EVENING
     Route: 055
     Dates: start: 201906
  3. FLUTICASONE PROPIONATE/SALMETEROL [Suspect]
     Active Substance: FLUTICASONE PROPIONATE\SALMETEROL XINAFOATE
     Indication: CHRONIC OBSTRUCTIVE PULMONARY DISEASE
  4. SIMVASTATIN. [Concomitant]
     Active Substance: SIMVASTATIN
     Indication: BLOOD CHOLESTEROL INCREASED
  5. ALBUTEROL. [Suspect]
     Active Substance: ALBUTEROL
     Indication: ASTHMA
     Dosage: EMERGENCY INHALER
     Route: 055
  6. MONTELUKAST [Concomitant]
     Active Substance: MONTELUKAST SODIUM
     Indication: ASTHMA

REACTIONS (4)
  - Fatigue [Recovered/Resolved]
  - Malaise [Recovered/Resolved]
  - Nasopharyngitis [Recovered/Resolved]
  - Nasal congestion [Recovered/Resolved]

NARRATIVE: CASE EVENT DATE: 201908
